FAERS Safety Report 19774232 (Version 2)
Quarter: 2021Q3

REPORT INFORMATION
  Report Type: Report from Study
  Country: US (occurrence: US)
  Receive Date: 20210831
  Receipt Date: 20210903
  Transmission Date: 20211014
  Serious: No
  Sender: FDA-Public Use
  Company Number: NVSC2021US192981

PATIENT
  Sex: Female

DRUGS (1)
  1. MAYZENT [Suspect]
     Active Substance: SIPONIMOD
     Indication: PRODUCT USED FOR UNKNOWN INDICATION
     Dosage: 2 MG, QD
     Route: 048

REACTIONS (9)
  - Presyncope [Unknown]
  - Depression [Unknown]
  - Chest pain [Unknown]
  - Crying [Unknown]
  - Diarrhoea [Unknown]
  - Irritability [Unknown]
  - Decreased appetite [Unknown]
  - Dizziness [Unknown]
  - Chest discomfort [Unknown]
